FAERS Safety Report 7384173-7 (Version None)
Quarter: 2011Q1

REPORT INFORMATION
  Report Type: 
  Country: None (occurrence: None)
  Receive Date: 20110322
  Receipt Date: 20110307
  Transmission Date: 20110831
  Serious: Yes (Other)
  Sender: FDA-Public Use
  Company Number: 2006S1003179

PATIENT
  Age: 65 Year
  Sex: Female
  Weight: 69.8539 kg

DRUGS (5)
  1. ALLEGRA [Concomitant]
  2. CELEBREX [Concomitant]
  3. PHOSPHOSODA GINGER LEMON [Suspect]
     Indication: COLONOSCOPY
     Dosage: 45 ML, TOTAL, PO
     Route: 048
     Dates: start: 20050824, end: 20050825
  4. ESTROGEN NOS [Concomitant]
  5. NULYTELY [Concomitant]

REACTIONS (4)
  - RENAL FAILURE [None]
  - MALAISE [None]
  - LOSS OF CONSCIOUSNESS [None]
  - INFLUENZA LIKE ILLNESS [None]
